FAERS Safety Report 14157128 (Version 2)
Quarter: 2017Q4

REPORT INFORMATION
  Report Type: Spontaneous
  Country: JP (occurrence: JP)
  Receive Date: 20171103
  Receipt Date: 20171120
  Transmission Date: 20180321
  Serious: Yes (Death)
  Sender: FDA-Public Use
  Company Number: JP-JNJFOC-20171102849

PATIENT
  Age: 81 Year
  Sex: Female
  Weight: 55 kg

DRUGS (12)
  1. PENTASA [Concomitant]
     Active Substance: MESALAMINE
     Indication: COLITIS ULCERATIVE
     Route: 048
     Dates: start: 1996, end: 20140921
  2. IMURAN [Concomitant]
     Active Substance: AZATHIOPRINE
     Indication: COLITIS ULCERATIVE
     Route: 048
     Dates: start: 20140922
  3. BROTIZOLAM [Concomitant]
     Active Substance: BROTIZOLAM
     Indication: INSOMNIA
     Route: 048
     Dates: start: 20060621
  4. CANDESARTAN. [Concomitant]
     Active Substance: CANDESARTAN
     Indication: HYPERTENSION
     Route: 048
     Dates: start: 20050216
  5. ZETIA [Concomitant]
     Active Substance: EZETIMIBE
     Indication: HYPERTRIGLYCERIDAEMIA
     Route: 048
     Dates: start: 20100118
  6. PENTASA [Concomitant]
     Active Substance: MESALAMINE
     Indication: COLITIS ULCERATIVE
     Route: 048
     Dates: start: 20161017
  7. SIMPONI [Suspect]
     Active Substance: GOLIMUMAB
     Indication: COLITIS ULCERATIVE
     Route: 058
     Dates: start: 20170424
  8. SIMPONI [Suspect]
     Active Substance: GOLIMUMAB
     Indication: COLITIS ULCERATIVE
     Route: 058
     Dates: start: 2017
  9. LEBENIN-S [Concomitant]
     Indication: COLITIS ULCERATIVE
     Route: 048
     Dates: start: 1996
  10. PARIET [Concomitant]
     Active Substance: RABEPRAZOLE SODIUM
     Indication: GASTROOESOPHAGEAL REFLUX DISEASE
     Route: 048
     Dates: start: 20170328
  11. CILOSTAZOL. [Concomitant]
     Active Substance: CILOSTAZOL
     Indication: CEREBRAL INFARCTION
     Route: 048
     Dates: start: 20141201
  12. ASACOL [Concomitant]
     Active Substance: MESALAMINE
     Indication: COLITIS ULCERATIVE
     Route: 048
     Dates: start: 20140922, end: 20161016

REACTIONS (1)
  - Cerebral haemorrhage [Fatal]

NARRATIVE: CASE EVENT DATE: 20171024
